FAERS Safety Report 17068470 (Version 1)
Quarter: 2019Q4

REPORT INFORMATION
  Report Type: Spontaneous
  Country: FR (occurrence: FR)
  Receive Date: 20191123
  Receipt Date: 20191123
  Transmission Date: 20200122
  Serious: Yes (Death, Hospitalization, Other)
  Sender: FDA-Public Use
  Company Number: FR-BION-008386

PATIENT
  Age: 22 Year
  Sex: Female

DRUGS (1)
  1. IBUPROFEN. [Suspect]
     Active Substance: IBUPROFEN
     Indication: INFLUENZA LIKE ILLNESS

REACTIONS (5)
  - Fusobacterium infection [Fatal]
  - Acute kidney injury [Unknown]
  - Condition aggravated [Fatal]
  - Lemierre syndrome [Fatal]
  - Acute hepatic failure [Unknown]
